FAERS Safety Report 9100950 (Version 2)
Quarter: 2013Q2

REPORT INFORMATION
  Report Type: Spontaneous
  Country: IT (occurrence: IT)
  Receive Date: 20130214
  Receipt Date: 20130403
  Transmission Date: 20140414
  Serious: Yes (Hospitalization)
  Sender: FDA-Public Use
  Company Number: IT-SANOFI-AVENTIS-2013SA012167

PATIENT
  Age: 72 Year
  Sex: Male

DRUGS (4)
  1. PLAVIX [Suspect]
     Indication: ISCHAEMIC CARDIOMYOPATHY
     Dosage: DOSE:1 UNIT(S)
     Route: 048
     Dates: start: 20000101, end: 20130125
  2. LOBIVON [Concomitant]
     Dosage: DOSE:1 UNIT(S)
     Route: 048
  3. ESIDREX [Concomitant]
  4. MICARDIS [Concomitant]

REACTIONS (2)
  - Urinary retention [Recovered/Resolved]
  - Haematuria [Recovered/Resolved]
